FAERS Safety Report 20913666 (Version 2)
Quarter: 2023Q2

REPORT INFORMATION
  Report Type: Spontaneous
  Country: US (occurrence: US)
  Receive Date: 20220604
  Receipt Date: 20230601
  Transmission Date: 20230722
  Serious: No
  Sender: FDA-Public Use
  Company Number: US-AUROBINDO-AUR-APL-2022-000472

PATIENT

DRUGS (1)
  1. ACETAMINOPHEN\HYDROCODONE BITARTRATE [Suspect]
     Active Substance: ACETAMINOPHEN\HYDROCODONE BITARTRATE
     Indication: Pain
     Dosage: UNK
     Route: 065

REACTIONS (9)
  - Abdominal pain upper [Unknown]
  - Diarrhoea [Unknown]
  - Headache [Unknown]
  - Lacrimation increased [Unknown]
  - Muscle spasms [Unknown]
  - Nasal congestion [Unknown]
  - Nausea [Unknown]
  - Rhinitis allergic [Unknown]
  - Drug ineffective [Unknown]
